FAERS Safety Report 5394659-2 (Version None)
Quarter: 2007Q3

REPORT INFORMATION
  Report Type: 
  Country: None (occurrence: None)
  Receive Date: 20070720
  Receipt Date: 20070705
  Transmission Date: 20080115
  Serious: Yes (Other)
  Sender: FDA-Public Use
  Company Number: 2007US-08221

PATIENT
  Age: 22 Year
  Sex: Female
  Weight: 61.2 kg

DRUGS (3)
  1. ISOTRETINOIN [Suspect]
     Indication: DRUG USE FOR UNKNOWN INDICATION
     Dosage: 40MG QAM, 20MG QPM, ORAL
     Route: 048
     Dates: start: 20070103, end: 20070528
  2. YASMIN [Concomitant]
  3. ZITHROMAX [Concomitant]

REACTIONS (5)
  - ABORTION INDUCED [None]
  - DRUG EXPOSURE DURING PREGNANCY [None]
  - LOWER RESPIRATORY TRACT INFECTION [None]
  - PREGNANCY [None]
  - SINUSITIS [None]
